FAERS Safety Report 6372486-7 (Version None)
Quarter: 2009Q3

REPORT INFORMATION
  Report Type: 
  Country: None (occurrence: None)
  Receive Date: 20090924
  Receipt Date: 20080801
  Transmission Date: 20100115
  Serious: No
  Sender: FDA-Public Use
  Company Number: US-ASTRAZENECA-2008UW15304

PATIENT
  Age: 54 Year
  Sex: Female

DRUGS (4)
  1. SEROQUEL [Suspect]
     Route: 048
  2. SEROQUEL [Suspect]
     Route: 048
  3. ACIPHEX [Concomitant]
  4. XANAX [Concomitant]

REACTIONS (2)
  - ARTHRALGIA [None]
  - MYALGIA [None]
